FAERS Safety Report 6411967-4 (Version None)
Quarter: 2009Q4

REPORT INFORMATION
  Report Type: 
  Country: None (occurrence: None)
  Receive Date: 20091023
  Receipt Date: 20091022
  Transmission Date: 20100525
  Serious: Yes (Other)
  Sender: FDA-Public Use
  Company Number: TR-ROXANE LABORATORIES, INC.-2009-RO-01087RO

PATIENT
  Age: 38 Year
  Sex: Male

DRUGS (3)
  1. RISPERIDONE [Suspect]
     Indication: PSYCHOTIC DISORDER
     Dosage: 4 MG
     Route: 048
  2. RISPERIDONE CONSTA [Suspect]
     Indication: PSYCHOTIC DISORDER
  3. RISPERIDONE CONSTA [Suspect]

REACTIONS (2)
  - DRUG INEFFECTIVE [None]
  - TARDIVE DYSKINESIA [None]
